FAERS Safety Report 24832444 (Version 3)
Quarter: 2025Q1

REPORT INFORMATION
  Report Type: Spontaneous
  Country: BR (occurrence: BR)
  Receive Date: 20250110
  Receipt Date: 20250219
  Transmission Date: 20250409
  Serious: Yes (Other)
  Sender: ABBVIE
  Company Number: BR-ABBOTT-2025A-1395112

PATIENT
  Sex: Female
  Weight: 58 kg

DRUGS (3)
  1. DEPAKOTE [Suspect]
     Active Substance: DIVALPROEX SODIUM
     Indication: Generalised tonic-clonic seizure
     Route: 048
  2. DEPAKOTE [Suspect]
     Active Substance: DIVALPROEX SODIUM
     Indication: Generalised tonic-clonic seizure
     Dosage: DEPAKOTE SPRINKLE?2 IN THE MORNING AND 2 AT NIGHT?FORM STRENGTH: 125MG
     Route: 048
  3. DEPAKOTE [Suspect]
     Active Substance: DIVALPROEX SODIUM
     Indication: Generalised tonic-clonic seizure
     Dosage: DEPAKOTE SPRINKLE?ONE CAPSULE IN THE MORNING AND ONE AT NIGHT?FORM STRENGTH: 125MG
     Route: 048

REACTIONS (8)
  - Partial seizures [Unknown]
  - Anxiety [Unknown]
  - Product quality issue [Unknown]
  - Product use issue [Unknown]
  - Product physical issue [Unknown]
  - Weight increased [Unknown]
  - Hunger [Unknown]
  - Seizure [Unknown]

NARRATIVE: CASE EVENT DATE: 20240901
